FAERS Safety Report 8248885-5 (Version None)
Quarter: 2012Q2

REPORT INFORMATION
  Report Type: 
  Country: None (occurrence: None)
  Receive Date: 20120401
  Receipt Date: 20120320
  Transmission Date: 20120825
  Serious: Yes (Other)
  Sender: FDA-Public Use
  Company Number: GB-ELI_LILLY_AND_COMPANY-GB201203006131

PATIENT
  Age: 18 Year
  Sex: Female
  Weight: 46.5 kg

DRUGS (2)
  1. FLUOXETINE [Suspect]
  2. OLANZAPINE [Suspect]
     Indication: DECREASED APPETITE
     Dosage: 2.5 MG, BID
     Route: 048
     Dates: start: 20120207, end: 20120229

REACTIONS (2)
  - ALANINE AMINOTRANSFERASE INCREASED [None]
  - OFF LABEL USE [None]
